FAERS Safety Report 25191334 (Version 1)
Quarter: 2025Q2

REPORT INFORMATION
  Report Type: Spontaneous
  Country: GB (occurrence: GB)
  Receive Date: 20250411
  Receipt Date: 20250411
  Transmission Date: 20250716
  Serious: Yes (Other)
  Sender: ELI LILLY AND CO
  Company Number: None

PATIENT
  Age: 47 Year
  Sex: Female

DRUGS (1)
  1. MOUNJARO [Suspect]
     Active Substance: TIRZEPATIDE
     Indication: Product used for unknown indication
     Route: 065

REACTIONS (5)
  - Rash erythematous [Recovering/Resolving]
  - Dry skin [Recovering/Resolving]
  - Injection site pain [Recovering/Resolving]
  - Injection site pruritus [Recovering/Resolving]
  - Wrong technique in product usage process [Unknown]

NARRATIVE: CASE EVENT DATE: 20250328
